FAERS Safety Report 6891519-2 (Version None)
Quarter: 2010Q3

REPORT INFORMATION
  Report Type: 
  Country: None (occurrence: None)
  Receive Date: 20100731
  Receipt Date: 20070914
  Transmission Date: 20110219
  Serious: No
  Sender: FDA-Public Use
  Company Number: US-PFIZER INC-2007005346

PATIENT
  Sex: Female
  Weight: 79.83 kg

DRUGS (1)
  1. NEURONTIN [Suspect]
     Indication: FIBROMYALGIA
     Dates: start: 20061101

REACTIONS (4)
  - BLOOD GLUCOSE DECREASED [None]
  - FOOD CRAVING [None]
  - INCREASED APPETITE [None]
  - IRRITABILITY [None]
